FAERS Safety Report 24600963 (Version 7)
Quarter: 2024Q4

REPORT INFORMATION
  Report Type: Spontaneous
  Country: CZ (occurrence: CZ)
  Receive Date: 20241110
  Receipt Date: 20241230
  Transmission Date: 20250114
  Serious: Yes (Other)
  Sender: ABBVIE
  Company Number: CZ-CELLTRION INC.-2024CZ026615

PATIENT
  Age: 25 Year
  Sex: Male

DRUGS (7)
  1. ADALIMUMAB [Suspect]
     Active Substance: ADALIMUMAB
     Indication: Behcet^s syndrome
     Dosage: ADALIMUMAB COMBINED WITH A LOW DOSE OF PREDNISONE AND AZATHIOPRINE WAS INITIATED
     Route: 058
  2. MYCOPHENOLATE MOFETIL [Suspect]
     Active Substance: MYCOPHENOLATE MOFETIL
     Indication: Behcet^s syndrome
     Route: 065
  3. INFLIXIMAB [Suspect]
     Active Substance: INFLIXIMAB
     Indication: Behcet^s syndrome
     Dosage: COMBINATION OF INFLIXIMAB, PREDNISONE, AND AZATHIOPRINE
     Route: 065
  4. AZATHIOPRINE [Suspect]
     Active Substance: AZATHIOPRINE
     Indication: Behcet^s syndrome
     Dosage: COMBINATION OF INFLIXIMAB, PREDNISONE, AND AZATHIOPRINE
     Route: 065
  5. AZATHIOPRINE [Suspect]
     Active Substance: AZATHIOPRINE
     Indication: Behcet^s syndrome
     Dosage: ADALIMUMAB COMBINED WITH A LOW DOSE OF PREDNISONE AND AZATHIOPRINE WAS INITIATED
     Route: 065
  6. PREDNISONE [Suspect]
     Active Substance: PREDNISONE
     Indication: Behcet^s syndrome
     Dosage: COMBINATION OF INFLIXIMAB, PREDNISONE, AND AZATHIOPRINE
     Route: 065
  7. PREDNISONE [Suspect]
     Active Substance: PREDNISONE
     Indication: Behcet^s syndrome
     Dosage: ADALIMUMAB COMBINED WITH A LOW DOSE OF PREDNISONE AND AZATHIOPRINE WAS INITIATED
     Route: 065

REACTIONS (8)
  - Macular oedema [Recovered/Resolved]
  - Off label use [Unknown]
  - Eye inflammation [Unknown]
  - Drug effective for unapproved indication [Unknown]
  - Mycobacterium tuberculosis complex test positive [Unknown]
  - Therapeutic product effect decreased [Recovered/Resolved]
  - Visual impairment [Unknown]
  - Angina pectoris [Unknown]
